FAERS Safety Report 7411155-9 (Version None)
Quarter: 2011Q2

REPORT INFORMATION
  Report Type: 
  Country: None (occurrence: None)
  Receive Date: 20110413
  Receipt Date: 20100305
  Transmission Date: 20111010
  Serious: Yes (Other)
  Sender: FDA-Public Use
  Company Number: US-BRISTOL-MYERS SQUIBB COMPANY-15004864

PATIENT
  Age: 6 Decade
  Sex: Male

DRUGS (4)
  1. ERBITUX [Suspect]
     Indication: COLORECTAL CANCER
  2. BENADRYL [Concomitant]
     Indication: PREMEDICATION
  3. IRINOTECAN [Concomitant]
     Indication: COLORECTAL CANCER
  4. DECADRON [Concomitant]
     Indication: PREMEDICATION

REACTIONS (4)
  - URTICARIA [None]
  - FLUSHING [None]
  - RETCHING [None]
  - PRURITUS [None]
